FAERS Safety Report 18427249 (Version 1)
Quarter: 2020Q4

REPORT INFORMATION
  Report Type: Spontaneous
  Country: ES (occurrence: ES)
  Receive Date: 20201026
  Receipt Date: 20201026
  Transmission Date: 20210114
  Serious: Yes (Hospitalization, Other)
  Sender: FDA-Public Use
  Company Number: ES-MYLANLABS-2020M1088877

PATIENT
  Age: 52 Year
  Sex: Male

DRUGS (6)
  1. EVEROLIMUS. [Interacting]
     Active Substance: EVEROLIMUS
     Dosage: UNK
  2. RIFAMPICIN [Interacting]
     Active Substance: RIFAMPIN
     Indication: RESPIRATORY FAILURE
     Dosage: UNK
  3. EVEROLIMUS. [Interacting]
     Active Substance: EVEROLIMUS
     Indication: IMMUNOSUPPRESSANT DRUG THERAPY
     Dosage: DOSE INCREASED
  4. RIFAMPICIN [Interacting]
     Active Substance: RIFAMPIN
     Indication: TUBERCULOSIS
  5. MYCOPHENOLIC ACID. [Suspect]
     Active Substance: MYCOPHENOLIC ACID
     Indication: IMMUNOSUPPRESSANT DRUG THERAPY
  6. PREDNISONE. [Suspect]
     Active Substance: PREDNISONE
     Indication: IMMUNOSUPPRESSANT DRUG THERAPY
     Dosage: UNK

REACTIONS (5)
  - Tuberculosis [Unknown]
  - Pleural effusion [Unknown]
  - Respiratory failure [Unknown]
  - Drug interaction [Recovered/Resolved]
  - Drug level decreased [Recovered/Resolved]
